FAERS Safety Report 6833460-7 (Version None)
Quarter: 2010Q3

REPORT INFORMATION
  Report Type: 
  Country: None (occurrence: None)
  Receive Date: 20100712
  Receipt Date: 20070324
  Transmission Date: 20110219
  Serious: No
  Sender: FDA-Public Use
  Company Number: US-PFIZER INC-2007025152

PATIENT
  Sex: Male
  Weight: 113.4 kg

DRUGS (6)
  1. CHANTIX [Suspect]
     Indication: SMOKING CESSATION THERAPY
     Dates: start: 20070320
  2. ALCOHOL [Suspect]
  3. CELEXA [Concomitant]
     Indication: PANIC DISORDER
  4. AMITRIPTYLINE HYDROCHLORIDE [Concomitant]
     Indication: PANIC DISORDER
  5. ACETYLSALICYLIC ACID [Concomitant]
  6. CHOLESTEROL- AND TRIGLYCERIDE REDUCERS [Concomitant]
     Indication: BLOOD CHOLESTEROL ABNORMAL

REACTIONS (7)
  - ABDOMINAL PAIN UPPER [None]
  - ALCOHOL POISONING [None]
  - DYSPNOEA [None]
  - INSOMNIA [None]
  - NAUSEA [None]
  - PANIC ATTACK [None]
  - RESTLESSNESS [None]
